FAERS Safety Report 11633987 (Version 1)
Quarter: 2015Q4

REPORT INFORMATION
  Report Type: Spontaneous
  Country: US (occurrence: US)
  Receive Date: 20151015
  Receipt Date: 20151015
  Transmission Date: 20160304
  Serious: No
  Sender: FDA-Public Use
  Company Number: US-INDIVIOR-RB-74101-2014

PATIENT
  Sex: Female

DRUGS (2)
  1. SUBUTEX [Suspect]
     Active Substance: BUPRENORPHINE HYDROCHLORIDE
     Indication: DRUG DEPENDENCE
     Dosage: UNK
     Route: 065
  2. SUBOXONE [Suspect]
     Active Substance: BUPRENORPHINE HYDROCHLORIDE\NALOXONE HYDROCHLORIDE
     Indication: DRUG DEPENDENCE
     Dosage: UNK, ALMOST FOUR YEARS
     Route: 060

REACTIONS (6)
  - Arthralgia [Not Recovered/Not Resolved]
  - Activities of daily living impaired [Not Recovered/Not Resolved]
  - Condition aggravated [Not Recovered/Not Resolved]
  - Malnutrition [Not Recovered/Not Resolved]
  - Mental disorder [Not Recovered/Not Resolved]
  - Tooth loss [Not Recovered/Not Resolved]
